FAERS Safety Report 7095169-7 (Version None)
Quarter: 2010Q4

REPORT INFORMATION
  Report Type: 
  Country: None (occurrence: None)
  Receive Date: 20101109
  Receipt Date: 20101109
  Transmission Date: 20110411
  Serious: No
  Sender: FDA-Public Use
  Company Number: None

PATIENT
  Age: 62 Year
  Sex: Female
  Weight: 117.4 kg

DRUGS (11)
  1. TAXOTERE [Suspect]
     Indication: BREAST CANCER METASTATIC
     Dosage: 165 MG IN 250 ML 0.9% NS ONCE INTRAVENOUS
     Route: 042
     Dates: start: 20100602
  2. TAXOTERE [Suspect]
     Indication: BREAST CANCER METASTATIC
     Dosage: 165 MG IN 250 ML 0.9% NS ONCE INTRAVENOUS
     Route: 042
     Dates: start: 20100623
  3. AMLODIPINE [Concomitant]
  4. CITALOPRAM [Concomitant]
  5. OXYBUTYNIN [Concomitant]
  6. AMITRIPTYLINE [Concomitant]
  7. VITAMIN D [Concomitant]
  8. IBUPROFEN [Concomitant]
  9. ZOLPIDEM [Concomitant]
  10. XANAX [Concomitant]
  11. DARVOCET [Concomitant]

REACTIONS (4)
  - BACK PAIN [None]
  - CHEST DISCOMFORT [None]
  - FLUSHING [None]
  - HEADACHE [None]
